FAERS Safety Report 13877697 (Version 6)
Quarter: 2019Q1

REPORT INFORMATION
  Report Type: Report from Study
  Country: US (occurrence: US)
  Receive Date: 20170817
  Receipt Date: 20190213
  Transmission Date: 20190417
  Serious: Yes (Hospitalization)
  Sender: FDA-Public Use
  Company Number: US-EISAI MEDICAL RESEARCH-EC-2017-028533

PATIENT
  Age: 69 Year
  Sex: Female
  Weight: 85.27 kg

DRUGS (26)
  1. LENVIMA [Suspect]
     Active Substance: LENVATINIB
     Indication: THYROID CANCER
     Route: 048
     Dates: start: 20170607, end: 201708
  2. CHLORHEXIDINE [Concomitant]
     Active Substance: CHLORHEXIDINE
  3. LENVIMA [Suspect]
     Active Substance: LENVATINIB
     Route: 048
     Dates: start: 201801, end: 20180115
  4. LENVIMA [Suspect]
     Active Substance: LENVATINIB
     Route: 048
     Dates: start: 20180806, end: 2018
  5. METFORMIN [Concomitant]
     Active Substance: METFORMIN HYDROCHLORIDE
  6. LISINOPRIL. [Concomitant]
     Active Substance: LISINOPRIL
  7. BIOTENE NOS [Concomitant]
     Active Substance: CETYLPYRIDINIUM CHLORIDE OR SODIUM FLUORIDE OR SODIUM MONOFLUOROPHOSPHATE OR GLUCOSE OXIDASE\LACTOFERRIN\LACTOPEROXIDASE BOVINE\LYSOZYME
  8. LENVIMA [Suspect]
     Active Substance: LENVATINIB
     Route: 048
     Dates: start: 2017, end: 20171130
  9. LENVIMA [Suspect]
     Active Substance: LENVATINIB
     Route: 048
     Dates: start: 201712, end: 201801
  10. HYDROCORTISONE-ALOE [Concomitant]
  11. AMLODIPINE [Concomitant]
     Active Substance: AMLODIPINE BESYLATE
  12. LIDOCAINE. [Concomitant]
     Active Substance: LIDOCAINE
  13. LENVIMA [Suspect]
     Active Substance: LENVATINIB
     Route: 048
     Dates: start: 20171204, end: 201712
  14. CYANOCOBALAMIN INJECTION [Concomitant]
     Active Substance: CYANOCOBALAMIN
  15. XARELTO [Concomitant]
     Active Substance: RIVAROXABAN
  16. MAX E [Concomitant]
  17. VITAMIN D3 [Concomitant]
     Active Substance: CHOLECALCIFEROL
  18. LENVIMA [Suspect]
     Active Substance: LENVATINIB
     Route: 048
     Dates: start: 201708, end: 2017
  19. LENVIMA [Suspect]
     Active Substance: LENVATINIB
     Route: 048
     Dates: start: 2018, end: 20180805
  20. PEPCID [Concomitant]
     Active Substance: FAMOTIDINE
  21. CLINDAMYCIN. [Concomitant]
     Active Substance: CLINDAMYCIN
  22. LENVIMA [Suspect]
     Active Substance: LENVATINIB
     Dosage: REDUCED DOSE (DOSE UNKNOWN)
     Route: 048
     Dates: start: 2018
  23. SYNTHROID [Concomitant]
     Active Substance: LEVOTHYROXINE SODIUM
  24. GABAPENTIN. [Concomitant]
     Active Substance: GABAPENTIN
  25. FOLIC ACID. [Concomitant]
     Active Substance: FOLIC ACID
  26. MAGNESIUM [Concomitant]
     Active Substance: MAGNESIUM

REACTIONS (50)
  - Abdominal pain upper [Unknown]
  - Cough [Not Recovered/Not Resolved]
  - Glossodynia [Recovered/Resolved]
  - Burn oesophageal [Unknown]
  - Dyspepsia [Unknown]
  - Neck mass [Unknown]
  - Balance disorder [Unknown]
  - Dizziness [Not Recovered/Not Resolved]
  - Hypovitaminosis [Not Recovered/Not Resolved]
  - Gastritis [Unknown]
  - Hypertension [Unknown]
  - Headache [Not Recovered/Not Resolved]
  - Dry mouth [Not Recovered/Not Resolved]
  - Muscular weakness [Unknown]
  - Tongue exfoliation [Recovered/Resolved]
  - Glossitis [Unknown]
  - Insomnia [Unknown]
  - Peripheral swelling [Unknown]
  - Dry skin [Unknown]
  - Skin exfoliation [Not Recovered/Not Resolved]
  - Haemoglobin decreased [Not Recovered/Not Resolved]
  - Head deformity [Not Recovered/Not Resolved]
  - Heart rate decreased [Not Recovered/Not Resolved]
  - Hypotension [Recovering/Resolving]
  - Blood pressure fluctuation [Unknown]
  - Asthenia [Not Recovered/Not Resolved]
  - Burning sensation [Unknown]
  - Tumour marker increased [Not Recovered/Not Resolved]
  - Vomiting [Unknown]
  - Aptyalism [Unknown]
  - Dehydration [Unknown]
  - Loss of consciousness [Unknown]
  - Decreased appetite [Unknown]
  - Palpitations [Unknown]
  - Syncope [Unknown]
  - Contusion [Not Recovered/Not Resolved]
  - Pain in extremity [Unknown]
  - Skin discolouration [Unknown]
  - Back pain [Not Recovered/Not Resolved]
  - Odynophagia [Not Recovered/Not Resolved]
  - Blister [Unknown]
  - Feeding disorder [Recovering/Resolving]
  - Nausea [Unknown]
  - Oral pain [Not Recovered/Not Resolved]
  - Urinary tract infection [Not Recovered/Not Resolved]
  - Weight decreased [Unknown]
  - Blood magnesium decreased [Unknown]
  - Diarrhoea [Unknown]
  - Blood iron decreased [Not Recovered/Not Resolved]
  - Nasopharyngitis [Unknown]

NARRATIVE: CASE EVENT DATE: 2017
